FAERS Safety Report 5584217-9 (Version None)
Quarter: 2008Q1

REPORT INFORMATION
  Report Type: 
  Country: None (occurrence: None)
  Receive Date: 20080108
  Receipt Date: 20080102
  Transmission Date: 20080703
  Serious: Yes (Hospitalization)
  Sender: FDA-Public Use
  Company Number: FR-WYE-G00830808

PATIENT
  Sex: Female

DRUGS (3)
  1. TAZOCILLINE [Suspect]
     Indication: FEBRILE INFECTION
     Dosage: UNKNOWN
     Route: 042
     Dates: start: 20071103, end: 20071106
  2. CIPROFLOXACIN HCL [Suspect]
     Indication: FEBRILE INFECTION
     Dosage: UNKNOWN
     Dates: start: 20071103
  3. ORBENINE [Suspect]
     Indication: FEBRILE INFECTION
     Dosage: UNKNOWN
     Route: 048
     Dates: start: 20071103, end: 20071108

REACTIONS (4)
  - DERMATITIS ALLERGIC [None]
  - PRURITUS [None]
  - RASH GENERALISED [None]
  - SKIN EXFOLIATION [None]
